FAERS Safety Report 8084565-7 (Version None)
Quarter: 2012Q1

REPORT INFORMATION
  Report Type: 
  Country: None (occurrence: None)
  Receive Date: 20120128
  Receipt Date: 20110323
  Transmission Date: 20120608
  Serious: No
  Sender: FDA-Public Use
  Company Number: US-ABBOTT-11P-163-0713481-00

PATIENT
  Sex: Female
  Weight: 66.738 kg

DRUGS (6)
  1. CENTRUM [Concomitant]
     Indication: VITAMIN SUPPLEMENTATION
  2. HUMIRA [Suspect]
     Indication: PSORIATIC ARTHROPATHY
     Dates: start: 20110118
  3. AMBIEN [Concomitant]
     Indication: SLEEP DISORDER THERAPY
  4. HUMIRA [Suspect]
     Indication: PSORIASIS
  5. IMPIRAM [Concomitant]
     Indication: GASTROINTESTINAL MOTILITY DISORDER
  6. FISH OIL [Concomitant]
     Indication: SUPPLEMENTATION THERAPY

REACTIONS (2)
  - WRONG TECHNIQUE IN DRUG USAGE PROCESS [None]
  - INCORRECT ROUTE OF DRUG ADMINISTRATION [None]
